FAERS Safety Report 8851038 (Version 2)
Quarter: 2012Q4

REPORT INFORMATION
  Report Type: 
  Country: FR (occurrence: FR)
  Receive Date: 20121019
  Receipt Date: 20121031
  Transmission Date: 20130627
  Serious: Yes (Other)
  Sender: FDA-Public Use
  Company Number: FR-JNJFOC-20121007823

PATIENT
  Age: 70 Year
  Sex: Male
  Weight: 70 kg

DRUGS (3)
  1. ZYTIGA [Suspect]
     Indication: PROSTATE CANCER
     Route: 048
     Dates: start: 20120410
  2. DOCETAXEL [Concomitant]
     Indication: MESOTHELIOMA
     Route: 042
     Dates: start: 20120117, end: 20120726
  3. NAVELBINE [Concomitant]
     Indication: PRODUCT USED FOR UNKNOWN INDICATION
     Route: 065

REACTIONS (5)
  - General physical health deterioration [Unknown]
  - Disease progression [Unknown]
  - Oedema peripheral [Unknown]
  - Dyspnoea [Unknown]
  - Myalgia [Unknown]
